FAERS Safety Report 23074863 (Version 2)
Quarter: 2023Q4

REPORT INFORMATION
  Report Type: Spontaneous
  Country: US (occurrence: US)
  Receive Date: 20231017
  Receipt Date: 20231208
  Transmission Date: 20240109
  Serious: Yes (Death, Other)
  Sender: FDA-Public Use
  Company Number: US-BIOVITRUM-2023-US-016787

PATIENT
  Sex: Male

DRUGS (1)
  1. SYNAGIS [Suspect]
     Active Substance: PALIVIZUMAB
     Indication: Immune thrombocytopenia
     Dosage: 15MG/KG ONE TIME PER MONTH (EVERY 28 TO 30 DAYS), 50 MG 0.5 ML VIAL
     Route: 030

REACTIONS (2)
  - Death [Fatal]
  - Intentional product misuse [Unknown]
